FAERS Safety Report 8606031-X (Version None)
Quarter: 2012Q3

REPORT INFORMATION
  Report Type: 
  Country: None (occurrence: None)
  Receive Date: 20120820
  Receipt Date: 20120810
  Transmission Date: 20120928
  Serious: Yes (Death, Life-Threatening, Other)
  Sender: FDA-Public Use
  Company Number: US-NAPPMUNDI-USA-2012-0091436

PATIENT
  Sex: Male

DRUGS (2)
  1. PROPOFOL [Suspect]
     Indication: PAIN
  2. DILAUDID [Suspect]
     Indication: PAIN
     Route: 042

REACTIONS (12)
  - SEDATION [None]
  - DRY MOUTH [None]
  - CARDIAC DISORDER [None]
  - CARDIOMEGALY [None]
  - KIDNEY ENLARGEMENT [None]
  - RESPIRATORY FAILURE [None]
  - LARYNGEAL DISORDER [None]
  - ABDOMINAL DISTENSION [None]
  - ILEUS [None]
  - DYSPNOEA [None]
  - SPLENOMEGALY [None]
  - APHAGIA [None]
